FAERS Safety Report 9524376 (Version 1)
Quarter: 2013Q3

REPORT INFORMATION
  Report Type: Spontaneous
  Country: US (occurrence: US)
  Receive Date: 20130916
  Receipt Date: 20130916
  Transmission Date: 20140515
  Serious: Yes (Other)
  Sender: FDA-Public Use
  Company Number: US-AMGEN-USASP2013064421

PATIENT
  Age: 55 Year
  Sex: Female
  Weight: 78.01 kg

DRUGS (9)
  1. ENBREL [Suspect]
     Indication: PRODUCT USED FOR UNKNOWN INDICATION
     Dosage: 50 MG, QWK
     Route: 058
  2. METHOTREXATE [Concomitant]
     Dosage: 2.5 MG, UNK
  3. GLUCOPHAGE [Concomitant]
     Dosage: 850 MG, UNK
  4. BENAZEPRIL [Concomitant]
     Dosage: 20 MG, UNK
  5. PROZAC [Concomitant]
     Dosage: 20 MG, UNK
  6. DIETHYLPROPION [Concomitant]
     Dosage: 25 MG, UNK
  7. PERCOCET                           /00867901/ [Concomitant]
     Dosage: 5-325 MG
  8. FOLIC ACID [Concomitant]
     Dosage: UNK
  9. VITAMIN B12                        /00056201/ [Concomitant]
     Dosage: 1000 MCG

REACTIONS (2)
  - Dyskinesia [Unknown]
  - Sensation of heaviness [Unknown]
